FAERS Safety Report 10642497 (Version 1)
Quarter: 2014Q4

REPORT INFORMATION
  Report Type: Spontaneous
  Country: US (occurrence: None)
  Receive Date: 20141121
  Receipt Date: 20141121
  Transmission Date: 20150529
  Serious: No
  Sender: FDA-Public Use
  Company Number: 163-10004-14082231

PATIENT
  Age: 60 Year
  Sex: Male

DRUGS (4)
  1. HUMIRA [Concomitant]
     Active Substance: ADALIMUMAB
  2. REMICADE [Concomitant]
     Active Substance: INFLIXIMAB
  3. OTEZLA [Suspect]
     Active Substance: APREMILAST
     Indication: PSORIATIC ARTHROPATHY
     Route: 048
     Dates: start: 20140707
  4. ENBREL [Concomitant]
     Active Substance: ETANERCEPT

REACTIONS (3)
  - Cognitive disorder [None]
  - Somnolence [None]
  - Asthenia [None]

NARRATIVE: CASE EVENT DATE: 20140707
